FAERS Safety Report 19998857 (Version 1)
Quarter: 2021Q4

REPORT INFORMATION
  Report Type: Spontaneous
  Country: US (occurrence: US)
  Receive Date: 20211027
  Receipt Date: 20211027
  Transmission Date: 20220303
  Serious: Yes (Other)
  Sender: FDA-Public Use
  Company Number: US-SUN PHARMACEUTICAL INDUSTRIES LTD-2021R1-315299

PATIENT
  Age: 43 Year
  Sex: Male

DRUGS (5)
  1. PREDNISONE [Suspect]
     Active Substance: PREDNISONE
     Indication: Pityriasis rubra pilaris
     Dosage: 5 MILLIGRAM, DAILY
     Route: 065
  2. BETAMETHASONE [Suspect]
     Active Substance: BETAMETHASONE
     Indication: Pityriasis rubra pilaris
     Route: 061
  3. CLOBETASOL [Suspect]
     Active Substance: CLOBETASOL
     Indication: Pityriasis rubra pilaris
     Route: 061
  4. TACROLIMUS [Suspect]
     Active Substance: TACROLIMUS
     Indication: Pityriasis rubra pilaris
     Route: 061
  5. SECUKINUMAB [Suspect]
     Active Substance: SECUKINUMAB
     Indication: Pityriasis rubra pilaris
     Dosage: 150 MILLIGRAM, WEEKLY
     Route: 065

REACTIONS (3)
  - Acute respiratory distress syndrome [Unknown]
  - Pneumomediastinum [Unknown]
  - Pneumocystis jirovecii pneumonia [Unknown]
